FAERS Safety Report 16515887 (Version 1)
Quarter: 2019Q3

REPORT INFORMATION
  Report Type: Spontaneous
  Country: US (occurrence: US)
  Receive Date: 20190702
  Receipt Date: 20190702
  Transmission Date: 20191004
  Serious: No
  Sender: FDA-Public Use
  Company Number: None

PATIENT
  Sex: Female

DRUGS (2)
  1. TRICOR [Suspect]
     Active Substance: FENOFIBRATE
  2. PRAVACHOL [Suspect]
     Active Substance: PRAVASTATIN SODIUM

REACTIONS (2)
  - Muscle spasms [None]
  - Muscular weakness [None]
